FAERS Safety Report 4789681-0 (Version None)
Quarter: 2005Q4

REPORT INFORMATION
  Report Type: 
  Country: None (occurrence: None)
  Receive Date: 20051006
  Receipt Date: 20050207
  Transmission Date: 20060501
  Serious: Yes (Death)
  Sender: FDA-Public Use
  Company Number: GB-BRISTOL-MYERS SQUIBB COMPANY-12862132

PATIENT
  Age: 80 Year
  Sex: Male

DRUGS (6)
  1. CYCLOPHOSPHAMIDE [Suspect]
     Route: 042
     Dates: start: 20040706, end: 20040706
  2. DOXORUBICIN HCL [Suspect]
     Route: 042
     Dates: start: 20040706, end: 20040706
  3. MABTHERA [Suspect]
     Route: 042
     Dates: start: 20040706, end: 20040706
  4. VINCRISTINE [Suspect]
     Route: 042
     Dates: start: 20040706, end: 20040706
  5. PREDNISONE [Concomitant]
     Dates: end: 20040819
  6. COLONY STIMULATING FACTOR [Concomitant]
     Dates: end: 20040819

REACTIONS (1)
  - NEUTROPENIC SEPSIS [None]
